FAERS Safety Report 4663226-8 (Version None)
Quarter: 2005Q2

REPORT INFORMATION
  Report Type: 
  Country: None (occurrence: None)
  Receive Date: 20050513
  Receipt Date: 20050502
  Transmission Date: 20051028
  Serious: Yes (Other)
  Sender: FDA-Public Use
  Company Number: 2005071284

PATIENT
  Sex: Female

DRUGS (2)
  1. CELEBREX [Suspect]
     Indication: ILL-DEFINED DISORDER
     Dosage: 400 MG (200 MG, 2 IN 1 D)
  2. RANITIDINE HYDROCHLORIDE [Concomitant]

REACTIONS (3)
  - HAEMORRHAGE [None]
  - PROCEDURAL COMPLICATION [None]
  - SKIN CANCER [None]
